FAERS Safety Report 9540369 (Version 1)
Quarter: 2013Q3

REPORT INFORMATION
  Report Type: Spontaneous
  Country: JP (occurrence: JP)
  Receive Date: 20130920
  Receipt Date: 20130920
  Transmission Date: 20140515
  Serious: Yes (Disabling)
  Sender: FDA-Public Use
  Company Number: JP-ASTRAZENECA-2013SE69379

PATIENT
  Age: 81 Year
  Sex: Female
  Weight: 37 kg

DRUGS (3)
  1. MARCAIN SPINAL [Suspect]
     Route: 037
  2. LIDOCAINE [Suspect]
     Route: 008
  3. ANAPEINE [Suspect]
     Indication: POSTOPERATIVE ANALGESIA
     Route: 008

REACTIONS (1)
  - Cauda equina syndrome [Recovered/Resolved with Sequelae]
